FAERS Safety Report 5365459-4 (Version None)
Quarter: 2007Q2

REPORT INFORMATION
  Report Type: 
  Country: None (occurrence: None)
  Receive Date: 20070530
  Receipt Date: 20070115
  Transmission Date: 20071010
  Serious: No
  Sender: FDA-Public Use
  Company Number: 2007PV028456

PATIENT
  Age: 61 Year
  Sex: Female
  Weight: 82.5547 kg

DRUGS (3)
  1. BYETTA [Suspect]
     Indication: DIABETES MELLITUS NON-INSULIN-DEPENDENT
     Dosage: 10 MCG; BID; SC; 5 MCG; SC
     Route: 058
     Dates: start: 20061111, end: 20061201
  2. BYETTA [Suspect]
     Indication: DIABETES MELLITUS NON-INSULIN-DEPENDENT
     Dosage: 10 MCG; BID; SC; 5 MCG; SC
     Route: 058
     Dates: start: 20061201
  3. HYDROCHLOROTHIAZIDE [Concomitant]

REACTIONS (1)
  - INJECTION SITE RASH [None]
